FAERS Safety Report 18565197 (Version 1)
Quarter: 2020Q4

REPORT INFORMATION
  Report Type: Spontaneous
  Country: US (occurrence: US)
  Receive Date: 20201201
  Receipt Date: 20201201
  Transmission Date: 20210114
  Serious: Yes (Hospitalization)
  Sender: FDA-Public Use
  Company Number: None

PATIENT
  Age: 46 Year
  Sex: Female

DRUGS (15)
  1. DICYCLOMINE [Concomitant]
     Active Substance: DICYCLOMINE HYDROCHLORIDE
  2. OXYCODONE AND ACETAMINOPHEN [Concomitant]
     Active Substance: ACETAMINOPHEN\OXYCODONE HYDROCHLORIDE
  3. ESZOPICLONE. [Concomitant]
     Active Substance: ESZOPICLONE
  4. ENBREL [Suspect]
     Active Substance: ETANERCEPT
     Indication: RHEUMATOID ARTHRITIS
     Dosage: ?          OTHER FREQUENCY:ONCE WEEKLY;?
     Route: 058
     Dates: start: 20200227
  5. DULOXETINE. [Concomitant]
     Active Substance: DULOXETINE
  6. LEVOTHYROXIN [Concomitant]
     Active Substance: LEVOTHYROXINE
  7. TIZANIDINE. [Concomitant]
     Active Substance: TIZANIDINE
  8. HYDROXYCHLOR [Concomitant]
     Active Substance: HYDROXYCHLOROQUINE
  9. GABAPENTIN. [Concomitant]
     Active Substance: GABAPENTIN
  10. ESTRADIOL. [Concomitant]
     Active Substance: ESTRADIOL
  11. FOLIC ACID. [Concomitant]
     Active Substance: FOLIC ACID
  12. HYDROCO/APAP [Concomitant]
     Active Substance: ACETAMINOPHEN\HYDROCODONE
  13. CLONAZEPAM. [Concomitant]
     Active Substance: CLONAZEPAM
  14. VIT D [Concomitant]
     Active Substance: VITAMIN D NOS
  15. ATORVASTATIN [Concomitant]
     Active Substance: ATORVASTATIN

REACTIONS (2)
  - Therapy interrupted [None]
  - Malaise [None]
